FAERS Safety Report 5198018-7 (Version None)
Quarter: 2007Q1

REPORT INFORMATION
  Report Type: 
  Country: None (occurrence: None)
  Receive Date: 20070104
  Receipt Date: 20061225
  Transmission Date: 20070707
  Serious: Yes (Life-Threatening)
  Sender: FDA-Public Use
  Company Number: JP-JNJFOC-20061204851

PATIENT
  Sex: Male

DRUGS (4)
  1. ITRIZOLE [Suspect]
     Route: 048
     Dates: start: 20061113, end: 20061213
  2. ITRIZOLE [Suspect]
     Indication: BRONCHOPULMONARY ASPERGILLOSIS
     Route: 048
     Dates: start: 20061113, end: 20061213
  3. PACETCOOL. [Concomitant]
     Indication: PYELONEPHRITIS
     Route: 041
  4. ENALAPRIL MALEATE [Concomitant]
     Indication: HYPERTENSION
     Route: 048

REACTIONS (1)
  - PLEURAL EFFUSION [None]
